FAERS Safety Report 18839439 (Version 9)
Quarter: 2021Q2

REPORT INFORMATION
  Report Type: Other
  Country: GB (occurrence: GB)
  Receive Date: 20210203
  Receipt Date: 20210606
  Transmission Date: 20210717
  Serious: Yes (Other)
  Sender: FDA-Public Use
  Company Number: GB-CELLTRION INC.-2020GB022901

PATIENT

DRUGS (43)
  1. WATER FOR INJECTION [Suspect]
     Active Substance: WATER
     Indication: MEDICATION DILUTION
     Dosage: UNK (DOSAGE FORM: 236)
     Route: 065
  2. WATER FOR INJECTION [Suspect]
     Active Substance: WATER
     Dosage: UNK (DOSAGE FORM: 236)
     Route: 065
  3. WATER FOR INJECTION [Suspect]
     Active Substance: WATER
     Dosage: UNK (DOSAGE FORM: 236)
     Route: 065
  4. WATER FOR INJECTION [Suspect]
     Active Substance: WATER
     Indication: MEDICATION DILUTION
     Dosage: UNK (DOSAGE FORM: 236), DOSE REINTRODUCED
     Route: 065
  5. WATER FOR INJECTION [Suspect]
     Active Substance: WATER
     Dosage: DOSE REINTRODUCED
     Route: 065
  6. SODIUM CHLORIDE. [Suspect]
     Active Substance: SODIUM CHLORIDE
     Dosage: UNK (DOSAGE FORM: 231)
     Route: 065
  7. SODIUM CHLORIDE. [Suspect]
     Active Substance: SODIUM CHLORIDE
     Dosage: UNK (DOSAGE FORM: 231)
     Route: 065
  8. SODIUM CHLORIDE  0.9% SOLUTION [Suspect]
     Active Substance: SODIUM CHLORIDE
     Dosage: UNK (DOSAGE FORM: 231)
     Route: 065
  9. WATER FOR INJECTION [Suspect]
     Active Substance: WATER
     Dosage: UNK (DOSAGE FORM: 236)
     Route: 065
  10. SODIUM CHLORIDE. [Suspect]
     Active Substance: SODIUM CHLORIDE
     Dosage: UNK (DOSAGE FORM: 231)
     Route: 065
  11. REMSIMA [Suspect]
     Active Substance: INFLIXIMAB
     Dosage: 400 MG
     Route: 065
  12. SODIUM CHLORIDE. [Suspect]
     Active Substance: SODIUM CHLORIDE
     Dosage: UNK (DOSAGE FORM: 231)
     Route: 065
  13. SODIUM CHLORIDE 0.9% INTRAVENOUS INFUSION BP [Suspect]
     Active Substance: SODIUM CHLORIDE
     Dosage: DOSE REINTRODUCED
     Route: 065
  14. SODIUM CHLORIDE 0.9% INTRAVENOUS INFUSION BP [Suspect]
     Active Substance: SODIUM CHLORIDE
     Dosage: DOSE REINTRODUCED
     Route: 065
  15. WATER FOR INJECTION [Suspect]
     Active Substance: WATER
     Dosage: UNK
     Route: 065
  16. REMSIMA [Suspect]
     Active Substance: INFLIXIMAB
     Dosage: 410 MG, DOSE REINTRODUCED
     Route: 065
  17. WATER FOR INJECTION [Suspect]
     Active Substance: WATER
     Dosage: UNK (DOSAGE FORM: 236), DOSE REINTRODUCED
     Route: 065
  18. SODIUM CHLORIDE. [Suspect]
     Active Substance: SODIUM CHLORIDE
     Indication: MEDICATION DILUTION
     Dosage: UNK (DOSAGE FORM: 231)
     Route: 065
  19. SODIUM CHLORIDE 0.9% INTRAVENOUS INFUSION BP [Suspect]
     Active Substance: SODIUM CHLORIDE
     Indication: MEDICATION DILUTION
     Dosage: DOSE REINTRODUCED
     Route: 065
  20. REMSIMA [Suspect]
     Active Substance: INFLIXIMAB
     Dosage: 410 MG
     Route: 065
  21. SODIUM CHLORIDE  0.9% SOLUTION [Suspect]
     Active Substance: SODIUM CHLORIDE
     Indication: MEDICATION DILUTION
     Dosage: UNK (DOSAGE FORM: 231)
     Route: 065
  22. WATER FOR INJECTION [Suspect]
     Active Substance: WATER
     Dosage: UNK (DOSAGE FORM: 236)
     Route: 065
  23. SODIUM CHLORIDE 0.9% INTRAVENOUS INFUSION BP [Suspect]
     Active Substance: SODIUM CHLORIDE
     Indication: MEDICATION DILUTION
     Dosage: UNK (DOSAGE FORM: 231) DOSE REINTRODUCED
     Route: 065
  24. SODIUM CHLORIDE 0.9% INTRAVENOUS INFUSION BP [Suspect]
     Active Substance: SODIUM CHLORIDE
     Dosage: DOSE REINTRODUCED
     Route: 065
  25. SODIUM CHLORIDE. [Suspect]
     Active Substance: SODIUM CHLORIDE
     Dosage: UNK (DOSAGE FORM: 231)
     Route: 065
  26. SODIUM CHLORIDE. [Suspect]
     Active Substance: SODIUM CHLORIDE
     Dosage: UNK (DOSAGE FORM: 231)
     Route: 065
  27. SODIUM CHLORIDE. [Suspect]
     Active Substance: SODIUM CHLORIDE
     Dosage: UNK (DOSAGE FORM: 231)
     Route: 065
  28. REMSIMA [Suspect]
     Active Substance: INFLIXIMAB
     Dosage: 410 MG
     Route: 065
  29. REMSIMA [Suspect]
     Active Substance: INFLIXIMAB
     Dosage: 410 MG, DOSE REINTRODUCED
     Route: 065
  30. REMSIMA [Suspect]
     Active Substance: INFLIXIMAB
     Dosage: 400 MG
     Route: 065
  31. WATER FOR INJECTION [Suspect]
     Active Substance: WATER
     Dosage: UNK (DOSAGE FORM: 236)
     Route: 065
  32. WATER FOR INJECTION [Suspect]
     Active Substance: WATER
     Indication: MEDICATION DILUTION
     Dosage: UNK
     Route: 065
  33. WATER FOR INJECTION [Suspect]
     Active Substance: WATER
     Dosage: UNK
     Route: 065
  34. REMSIMA [Suspect]
     Active Substance: INFLIXIMAB
     Indication: PRODUCT USED FOR UNKNOWN INDICATION
     Dosage: 400 MG
     Route: 065
  35. REMSIMA [Suspect]
     Active Substance: INFLIXIMAB
     Dosage: 400 MG
     Route: 065
  36. SODIUM CHLORIDE 0.9% INTRAVENOUS INFUSION BP [Suspect]
     Active Substance: SODIUM CHLORIDE
     Dosage: DOSE REINTRODUCED
     Route: 065
  37. WATER FOR INJECTION [Suspect]
     Active Substance: WATER
     Dosage: DOSE REINTRODUCED
     Route: 065
  38. SODIUM CHLORIDE 0.9% INTRAVENOUS INFUSION BP [Suspect]
     Active Substance: SODIUM CHLORIDE
     Dosage: DOSE REINTRODUCED
     Route: 065
  39. REMSIMA [Suspect]
     Active Substance: INFLIXIMAB
     Dosage: 410 MG
     Route: 065
  40. REMSIMA [Suspect]
     Active Substance: INFLIXIMAB
     Dosage: 410 MG, DOSE REINTRODUCED
     Route: 065
  41. REMSIMA [Suspect]
     Active Substance: INFLIXIMAB
     Dosage: 410 MG, DOSE REINTRODUCED
     Route: 065
  42. SODIUM CHLORIDE 0.9% INTRAVENOUS INFUSION BP [Suspect]
     Active Substance: SODIUM CHLORIDE
     Dosage: UNK (DOSAGE FORM: 231) DOSE REINTRODUCED
     Route: 065
  43. WATER FOR INJECTION [Suspect]
     Active Substance: WATER
     Dosage: UNK
     Route: 065

REACTIONS (6)
  - Defaecation urgency [Unknown]
  - Malaise [Unknown]
  - Drug specific antibody present [Unknown]
  - Haematochezia [Unknown]
  - Mucous stools [Unknown]
  - Oropharyngeal pain [Unknown]

NARRATIVE: CASE EVENT DATE: 202012
